FAERS Safety Report 8271119-2 (Version None)
Quarter: 2012Q2

REPORT INFORMATION
  Report Type: 
  Country: None (occurrence: None)
  Receive Date: 20120410
  Receipt Date: 20120403
  Transmission Date: 20120825
  Serious: Yes (Hospitalization, Other)
  Sender: FDA-Public Use
  Company Number: US-PFIZER INC-2012059961

PATIENT
  Sex: Male

DRUGS (16)
  1. PLAVIX [Concomitant]
     Dosage: 75 MG, 1X/DAY
     Route: 048
     Dates: start: 20100201
  2. ASPIRIN [Concomitant]
     Dosage: 325 MG, 1X/DAY
     Route: 048
     Dates: start: 20110201
  3. COREG [Concomitant]
     Dosage: 6.25 MG, 2X/DAY
     Route: 048
     Dates: start: 20110201
  4. GLUCOTROL XL [Suspect]
     Dosage: 5 G, 2X/DAY
     Route: 048
     Dates: start: 20110201
  5. LASIX [Concomitant]
     Dosage: 20 MG, 1X/DAY
     Route: 048
     Dates: start: 20110705
  6. MIRTAZAPINE [Concomitant]
     Dosage: 30 MG, 1X/DAY
     Dates: start: 20110705
  7. METFORMIN [Concomitant]
     Dosage: 500 MG, 1X/DAY
     Route: 048
     Dates: start: 20110705
  8. FAMOTIDINE [Concomitant]
     Dosage: 20 MG, 2X/DAY
     Route: 048
     Dates: start: 20110705
  9. ALBUTEROL [Concomitant]
     Dosage: UNK
  10. LYRICA [Suspect]
     Dosage: 75 MG, 1X/DAY
     Route: 048
  11. LISINOPRIL [Concomitant]
     Dosage: 10 MG, 1X/DAY
     Route: 048
     Dates: start: 20110705
  12. BUSPIRONE [Concomitant]
     Dosage: 5 MG, 3X/DAY
     Route: 048
     Dates: start: 20110705
  13. PEPCID [Concomitant]
     Dosage: 80 MG, 2X/DAY
     Route: 048
     Dates: start: 20110201
  14. SEROQUEL [Concomitant]
     Dosage: 150 G, UNK (300 G CUTS 1/2 PO QHS)
     Route: 048
  15. NITROGLYCERIN [Concomitant]
     Dosage: 0.4 MG, AS NEEDED (PRN)
     Dates: start: 20110201
  16. TRAZODONE [Concomitant]
     Dosage: 100 MG, 1X/DAY
     Route: 048
     Dates: start: 20110705

REACTIONS (1)
  - SUICIDE ATTEMPT [None]
